FAERS Safety Report 4811390-X (Version None)
Quarter: 2005Q4

REPORT INFORMATION
  Report Type: 
  Country: None (occurrence: None)
  Receive Date: 20051026
  Receipt Date: 20051026
  Transmission Date: 20060501
  Serious: Yes (Hospitalization)
  Sender: FDA-Public Use
  Company Number: None

PATIENT
  Sex: Male
  Weight: 65.0912 kg

DRUGS (1)
  1. ACYCLOVIR [Suspect]
     Indication: HERPES SIMPLEX
     Dosage: 400 MG   BID   PO
     Route: 048
     Dates: start: 20050801, end: 20050811

REACTIONS (2)
  - PHOTOSENSITIVITY REACTION [None]
  - SUNBURN [None]
